FAERS Safety Report 4956447-8 (Version None)
Quarter: 2006Q1

REPORT INFORMATION
  Report Type: 
  Country: None (occurrence: None)
  Receive Date: 20060328
  Receipt Date: 20060328
  Transmission Date: 20060701
  Serious: Yes (Hospitalization)
  Sender: FDA-Public Use
  Company Number: None

PATIENT
  Age: 36 Year
  Sex: Male
  Weight: 102.0593 kg

DRUGS (1)
  1. ZOFRAN [Suspect]
     Dosage: 4 MG IV IV X 1 IN OR IV
     Route: 042

REACTIONS (3)
  - BLINDNESS TRANSIENT [None]
  - MYOCLONUS [None]
  - POST PROCEDURAL COMPLICATION [None]
